FAERS Safety Report 23833555 (Version 1)
Quarter: 2024Q2

REPORT INFORMATION
  Report Type: Report from Study
  Country: CA (occurrence: CA)
  Receive Date: 20240508
  Receipt Date: 20240508
  Transmission Date: 20240716
  Serious: Yes (Hospitalization, Other)
  Sender: FDA-Public Use
  Company Number: CA-LUNDBECK-DKLU3077625

PATIENT
  Age: 53 Year
  Sex: Female

DRUGS (3)
  1. VYEPTI [Suspect]
     Active Substance: EPTINEZUMAB-JJMR
     Indication: Migraine
     Route: 041
     Dates: start: 20230331
  2. VYEPTI [Suspect]
     Active Substance: EPTINEZUMAB-JJMR
     Route: 041
     Dates: start: 20230623
  3. KETOROLAC [Concomitant]
     Active Substance: KETOROLAC TROMETHAMINE
     Indication: Product used for unknown indication
     Route: 065

REACTIONS (1)
  - Conversion disorder [Not Recovered/Not Resolved]

NARRATIVE: CASE EVENT DATE: 20240401
